FAERS Safety Report 11772923 (Version 2)
Quarter: 2015Q4

REPORT INFORMATION
  Report Type: Spontaneous
  Country: US (occurrence: US)
  Receive Date: 20151124
  Receipt Date: 20151210
  Transmission Date: 20160304
  Serious: Yes (Other)
  Sender: FDA-Public Use
  Company Number: US-JNJFOC-20151121281

PATIENT
  Sex: Male

DRUGS (2)
  1. INVEGA SUSTENNA [Suspect]
     Active Substance: PALIPERIDONE PALMITATE
     Indication: PRODUCT USED FOR UNKNOWN INDICATION
     Route: 030
     Dates: end: 201502
  2. INVEGA [Suspect]
     Active Substance: PALIPERIDONE
     Indication: PRODUCT USED FOR UNKNOWN INDICATION
     Route: 048

REACTIONS (12)
  - Hallucination, auditory [Unknown]
  - Meningitis [Unknown]
  - Hypoacusis [Unknown]
  - Adverse drug reaction [Unknown]
  - Dizziness [Unknown]
  - Hypersomnia [Unknown]
  - CSF protein increased [Unknown]
  - Protein total increased [Unknown]
  - Malaise [Unknown]
  - Central nervous system infection [Unknown]
  - Asthenia [Unknown]
  - Lymphadenopathy [Unknown]
